FAERS Safety Report 13581248 (Version 2)
Quarter: 2017Q2

REPORT INFORMATION
  Report Type: Report from Study
  Country: US (occurrence: US)
  Receive Date: 20170525
  Receipt Date: 20170525
  Transmission Date: 20170830
  Serious: Yes (Other)
  Sender: FDA-Public Use
  Company Number: US-BIOGEN-2010BI034060

PATIENT
  Age: 42 Year
  Sex: Female
  Weight: 117.13 kg

DRUGS (9)
  1. PROVIGIL [Concomitant]
     Active Substance: MODAFINIL
     Indication: FATIGUE
     Route: 065
     Dates: start: 20090105
  2. HYDROCODONE [Concomitant]
     Active Substance: HYDROCODONE
     Route: 065
     Dates: start: 20061027
  3. BG00012 [Suspect]
     Active Substance: DIMETHYL FUMARATE
     Indication: MULTIPLE SCLEROSIS
     Route: 048
     Dates: start: 20090909, end: 20100915
  4. METFORMIN [Concomitant]
     Active Substance: METFORMIN HYDROCHLORIDE
     Indication: DIABETES MELLITUS
     Route: 065
     Dates: start: 20090616
  5. BACLOFEN. [Concomitant]
     Active Substance: BACLOFEN
     Indication: MUSCLE TIGHTNESS
     Route: 065
     Dates: start: 20070319
  6. HYDROCODONE [Concomitant]
     Active Substance: HYDROCODONE
     Indication: MUSCLE TIGHTNESS
     Route: 065
     Dates: start: 20061027
  7. ADVIL [Concomitant]
     Active Substance: IBUPROFEN
     Indication: HEADACHE
     Route: 065
     Dates: start: 200911
  8. DETROL LA [Concomitant]
     Active Substance: TOLTERODINE TARTRATE
     Indication: ANAL INCONTINENCE
     Route: 048
     Dates: start: 20100825
  9. LEVOTHYROXINE. [Concomitant]
     Active Substance: LEVOTHYROXINE
     Indication: HYPOTHYROIDISM
     Route: 048
     Dates: start: 20091106

REACTIONS (1)
  - Mucoepidermoid carcinoma of salivary gland [Recovered/Resolved with Sequelae]

NARRATIVE: CASE EVENT DATE: 20100818
